FAERS Safety Report 21056667 (Version 1)
Quarter: 2022Q3

REPORT INFORMATION
  Report Type: Spontaneous
  Country: US (occurrence: US)
  Receive Date: 20220708
  Receipt Date: 20220708
  Transmission Date: 20221027
  Serious: No
  Sender: FDA-Public Use
  Company Number: US-ALLERGAN-2216341US

PATIENT
  Sex: Male
  Weight: 67.13 kg

DRUGS (1)
  1. QULIPTA [Suspect]
     Active Substance: ATOGEPANT
     Indication: Migraine
     Dosage: 60 MG, QD
     Route: 048
     Dates: end: 20220518

REACTIONS (15)
  - Dysphagia [Not Recovered/Not Resolved]
  - Starvation [Not Recovered/Not Resolved]
  - Dizziness [Recovering/Resolving]
  - Feeding disorder [Recovering/Resolving]
  - Periorbital swelling [Unknown]
  - Vomiting [Unknown]
  - Insomnia [Unknown]
  - Wrong technique in product usage process [Unknown]
  - Off label use [Unknown]
  - Constipation [Unknown]
  - Somnolence [Unknown]
  - Nausea [Unknown]
  - Fatigue [Unknown]
  - Weight decreased [Recovering/Resolving]
  - Decreased appetite [Recovering/Resolving]
